FAERS Safety Report 15037378 (Version 1)
Quarter: 2018Q2

REPORT INFORMATION
  Report Type: Spontaneous
  Country: US (occurrence: US)
  Receive Date: 20180620
  Receipt Date: 20180620
  Transmission Date: 20180711
  Serious: Yes (Hospitalization)
  Sender: FDA-Public Use
  Company Number: US-COLLEGIUM PHARMACEUTICAL, INC.-US-2018DEP001257

PATIENT

DRUGS (2)
  1. NUCYNTA [Suspect]
     Active Substance: TAPENTADOL HYDROCHLORIDE
     Indication: EHLERS-DANLOS SYNDROME
     Dosage: 100 MG, ONCE OR TWICE DAILY
     Route: 048
     Dates: end: 201707
  2. NUCYNTA [Suspect]
     Active Substance: TAPENTADOL HYDROCHLORIDE
     Indication: FIBROMYALGIA

REACTIONS (4)
  - Pain [Unknown]
  - Depression [Unknown]
  - Weight increased [Unknown]
  - Product use in unapproved indication [Unknown]
